FAERS Safety Report 8547613-3 (Version None)
Quarter: 2012Q3

REPORT INFORMATION
  Report Type: 
  Country: None (occurrence: None)
  Receive Date: 20120727
  Receipt Date: 20120326
  Transmission Date: 20120928
  Serious: Yes (Hospitalization)
  Sender: FDA-Public Use
  Company Number: US-ASTRAZENECA-2012SE19531

PATIENT
  Age: 58 Year
  Sex: Male
  Weight: 81.6 kg

DRUGS (27)
  1. SEROQUEL XR [Suspect]
     Indication: SLEEP DISORDER
     Route: 048
     Dates: end: 20110801
  2. ALENDRONATE SODIUM [Concomitant]
     Indication: PROPHYLAXIS
     Route: 048
  3. VITAMIN D [Concomitant]
     Indication: VITAMIN SUPPLEMENTATION
     Route: 048
  4. SEROQUEL XR [Suspect]
     Indication: MAJOR DEPRESSION
     Route: 048
     Dates: end: 20110801
  5. SEROQUEL XR [Suspect]
     Route: 048
  6. SEROQUEL XR [Suspect]
     Route: 048
  7. ANDROGEL OINTMENT [Concomitant]
     Indication: BLOOD TESTOSTERONE DECREASED
     Route: 061
  8. SEROQUEL XR [Suspect]
     Indication: POST-TRAUMATIC STRESS DISORDER
     Route: 048
     Dates: end: 20110801
  9. SEROQUEL XR [Suspect]
     Route: 048
     Dates: start: 20110801
  10. SEROQUEL XR [Suspect]
     Route: 048
  11. SEROQUEL XR [Suspect]
     Route: 048
  12. ZOLPIDEM [Concomitant]
     Indication: SLEEP DISORDER
     Route: 048
  13. CITALOPRAM HYDROBROMIDE [Concomitant]
     Indication: DEPRESSION
     Route: 048
  14. PREDNISONE [Concomitant]
     Indication: PSORIATIC ARTHROPATHY
     Route: 048
  15. SEROQUEL XR [Suspect]
     Route: 048
  16. GABAPENTIN [Concomitant]
     Indication: PSORIATIC ARTHROPATHY
     Route: 048
  17. TRAZODONE HYDROCHLORIDE [Concomitant]
     Indication: SLEEP DISORDER
     Route: 048
  18. SULFASALAZINE [Concomitant]
     Indication: PSORIATIC ARTHROPATHY
     Route: 048
  19. LOSARTAN POTASSIUM [Concomitant]
     Indication: BLOOD PRESSURE
  20. SEROQUEL XR [Suspect]
     Route: 048
     Dates: start: 20110801
  21. SEROQUEL XR [Suspect]
     Route: 048
  22. ALPRAZOLAM [Concomitant]
     Indication: DEPRESSION
     Route: 048
  23. AMBYO [Concomitant]
     Indication: PSORIATIC ARTHROPATHY
  24. ASPIRIN [Concomitant]
     Indication: PROPHYLAXIS
     Route: 048
  25. OMEPRAZOLE [Concomitant]
     Indication: GASTROOESOPHAGEAL REFLUX DISEASE
  26. SEROQUEL XR [Suspect]
     Route: 048
     Dates: start: 20110801
  27. CALCIUM [Concomitant]
     Indication: MINERAL SUPPLEMENTATION
     Route: 048

REACTIONS (7)
  - UNRESPONSIVE TO STIMULI [None]
  - DRUG DOSE OMISSION [None]
  - MALAISE [None]
  - INTENTIONAL DRUG MISUSE [None]
  - OVERDOSE [None]
  - INSOMNIA [None]
  - IRRITABILITY [None]
